FAERS Safety Report 25606714 (Version 1)
Quarter: 2025Q3

REPORT INFORMATION
  Report Type: Spontaneous
  Country: US (occurrence: US)
  Receive Date: 20250725
  Receipt Date: 20250725
  Transmission Date: 20251020
  Serious: Yes (Life-Threatening, Hospitalization, Other)
  Sender: AMGEN
  Company Number: US-AMGEN-USASP2025142037

PATIENT
  Age: 51 Year
  Sex: Male

DRUGS (1)
  1. PREDNISONE [Suspect]
     Active Substance: PREDNISONE
     Indication: Rheumatic disorder
     Dosage: UNK, QD (DAILY)
     Route: 065

REACTIONS (5)
  - Pneumomediastinum [Recovering/Resolving]
  - Hypoxia [Recovering/Resolving]
  - Dermatomyositis [Recovering/Resolving]
  - Interstitial lung disease [Recovering/Resolving]
  - Organising pneumonia [Recovering/Resolving]
